FAERS Safety Report 6231439-X (Version None)
Quarter: 2009Q2

REPORT INFORMATION
  Report Type: 
  Country: None (occurrence: None)
  Receive Date: 20090616
  Receipt Date: 20090610
  Transmission Date: 20091009
  Serious: Yes (Hospitalization, Other)
  Sender: FDA-Public Use
  Company Number: JP-JNJFOC-20090504651

PATIENT
  Age: 83 Year
  Sex: Male

DRUGS (8)
  1. ITRIZOLE [Suspect]
     Route: 048
  2. ITRIZOLE [Suspect]
     Indication: ONYCHOMYCOSIS
     Route: 048
  3. LEVOFLOXACIN [Concomitant]
  4. PARIET [Concomitant]
     Route: 048
  5. MAGLAX [Concomitant]
     Route: 048
  6. IMIPRAMINE HYDROCHLORIDE [Concomitant]
     Route: 048
  7. WARFARIN POTASSIUM [Concomitant]
     Route: 048
  8. GASTER [Concomitant]
     Route: 048

REACTIONS (2)
  - EOSINOPHILIA [None]
  - PNEUMONIA [None]
